FAERS Safety Report 15633166 (Version 1)
Quarter: 2018Q4

REPORT INFORMATION
  Report Type: Spontaneous
  Country: US (occurrence: US)
  Receive Date: 20181116
  Receipt Date: 20181116
  Transmission Date: 20190205
  Serious: Yes (Life-Threatening)
  Sender: FDA-Public Use
  Company Number: None

PATIENT
  Age: 42 Year
  Sex: Male
  Weight: 262 kg

DRUGS (1)
  1. PIPERACIL-TAZOBACT 3.375 GM [Suspect]
     Active Substance: PIPERACILLIN SODIUM\TAZOBACTAM SODIUM
     Indication: RESPIRATORY FAILURE
     Dosage: ?          OTHER FREQUENCY:Q8H;?
     Route: 042
     Dates: start: 20180828, end: 20180901

REACTIONS (12)
  - Acute kidney injury [None]
  - Atrial flutter [None]
  - Autoimmune haemolytic anaemia [None]
  - Cardiac disorder [None]
  - Culture positive [None]
  - Transfusion [None]
  - Fluid overload [None]
  - Acute respiratory distress syndrome [None]
  - Pseudomonas infection [None]
  - Respiratory failure [None]
  - Shock [None]
  - Acute hepatic failure [None]

NARRATIVE: CASE EVENT DATE: 20180901
